FAERS Safety Report 9714055 (Version 1)
Quarter: 2013Q4

REPORT INFORMATION
  Report Type: Spontaneous
  Country: US (occurrence: US)
  Receive Date: 20131126
  Receipt Date: 20131126
  Transmission Date: 20140711
  Serious: No
  Sender: FDA-Public Use
  Company Number: US-GILEAD-2008-0018714

PATIENT
  Sex: Female
  Weight: 43.09 kg

DRUGS (9)
  1. LETAIRIS [Suspect]
     Indication: COR PULMONALE CHRONIC
     Route: 048
     Dates: start: 20080710
  2. REVATIO [Concomitant]
     Route: 048
  3. NORVASC [Concomitant]
     Route: 048
  4. LOZOL [Concomitant]
     Route: 048
  5. ASPIRIN EC [Concomitant]
     Route: 048
  6. SYNTHROID [Concomitant]
     Route: 048
  7. PRILOSEC [Concomitant]
     Route: 048
  8. MOTRIN [Concomitant]
     Route: 048
  9. VITAMIN D [Concomitant]
     Route: 048

REACTIONS (2)
  - Pain [None]
  - Anaemia [None]
